FAERS Safety Report 5661552-7 (Version None)
Quarter: 2008Q1

REPORT INFORMATION
  Report Type: 
  Country: None (occurrence: None)
  Receive Date: 20080312
  Receipt Date: 20080310
  Transmission Date: 20080703
  Serious: Yes (Death)
  Sender: FDA-Public Use
  Company Number: PHEH2007US15497

PATIENT
  Age: 78 Year
  Sex: Male
  Weight: 65.759 kg

DRUGS (1)
  1. EXJADE [Suspect]
     Indication: IRON OVERLOAD
     Dosage: 1000 MG, QD
     Route: 048
     Dates: start: 20070626, end: 20071101

REACTIONS (2)
  - ACUTE MYELOID LEUKAEMIA [None]
  - HAEMOGLOBIN DECREASED [None]
